FAERS Safety Report 5479118-0 (Version None)
Quarter: 2007Q4

REPORT INFORMATION
  Report Type: 
  Country: None (occurrence: None)
  Receive Date: 20071006
  Receipt Date: 20070925
  Transmission Date: 20080405
  Serious: Yes (Congenital Anomaly, Other)
  Sender: FDA-Public Use
  Company Number: US-PFIZER INC-2007081624

PATIENT
  Sex: Female

DRUGS (2)
  1. CHANTIX [Suspect]
     Dosage: TEXT:EVERY DAY
     Dates: start: 20070614, end: 20070712
  2. ALLERGY MEDICATION [Concomitant]

REACTIONS (4)
  - FEELING ABNORMAL [None]
  - HYPERCHOLESTEROLAEMIA [None]
  - INTENTIONAL DRUG MISUSE [None]
  - WEIGHT INCREASED [None]
